FAERS Safety Report 10155438 (Version 3)
Quarter: 2014Q2

REPORT INFORMATION
  Report Type: Report from Study
  Country: JP (occurrence: JP)
  Receive Date: 20140506
  Receipt Date: 20140630
  Transmission Date: 20141212
  Serious: Yes (Hospitalization)
  Sender: FDA-Public Use
  Company Number: JP-ACTELION-A-CH2012-67988

PATIENT
  Age: 80 Year
  Sex: Female

DRUGS (7)
  1. TRACLEER [Suspect]
     Indication: PULMONARY ARTERIAL HYPERTENSION
     Dosage: 62.5 MG, BID
     Route: 048
     Dates: start: 20120301
  2. BERAPROST SODIUM [Concomitant]
  3. LOSARTAN POTASSIUM [Concomitant]
  4. AMLODIPINE BESILATE [Concomitant]
  5. ASPIRIN [Concomitant]
  6. ZOLPIDEM TARTRATE [Concomitant]
  7. OXYGEN [Concomitant]

REACTIONS (8)
  - Pulmonary arterial hypertension [Recovered/Resolved]
  - Condition aggravated [Recovered/Resolved]
  - Aspartate aminotransferase increased [Recovered/Resolved]
  - Alanine aminotransferase increased [Recovered/Resolved]
  - Pneumonia [Recovered/Resolved]
  - Sepsis [Recovered/Resolved]
  - White blood cell count increased [Recovered/Resolved]
  - Upper respiratory tract infection [Recovered/Resolved]
